FAERS Safety Report 4283908-X (Version None)
Quarter: 2004Q1

REPORT INFORMATION
  Report Type: 
  Country: None (occurrence: None)
  Receive Date: 20040115
  Receipt Date: 20020702
  Transmission Date: 20041129
  Serious: Yes (Death)
  Sender: FDA-Public Use
  Company Number: US-JNJFOC-20030700749

PATIENT
  Age: 63 Year
  Sex: Male
  Weight: 80.7403 kg

DRUGS (1)
  1. DOXIL [Suspect]
     Indication: PROSTATE CANCER
     Dosage: 25 MG
     Dates: start: 20010528, end: 20030609

REACTIONS (1)
  - DISEASE PROGRESSION [None]
